FAERS Safety Report 20353631 (Version 2)
Quarter: 2022Q1

REPORT INFORMATION
  Report Type: Report from Study
  Country: JP (occurrence: JP)
  Receive Date: 20220120
  Receipt Date: 20220217
  Transmission Date: 20220423
  Serious: Yes (Hospitalization, Other)
  Sender: FDA-Public Use
  Company Number: JP-SA-2022SA013882

PATIENT
  Age: 72 Year
  Sex: Female
  Weight: 34.9 kg

DRUGS (13)
  1. SARILUMAB [Suspect]
     Active Substance: SARILUMAB
     Indication: Rheumatoid arthritis
     Dosage: 200 MG, QOW
     Route: 058
     Dates: start: 20210309, end: 20210824
  2. SARILUMAB [Suspect]
     Active Substance: SARILUMAB
     Dosage: 200 MG, QOW
     Route: 058
     Dates: start: 20210928
  3. TEPRENONE [Concomitant]
     Active Substance: TEPRENONE
     Indication: Gastritis prophylaxis
     Dosage: 1.5 G, TID
     Route: 048
     Dates: start: 20190826
  4. TEPRENONE [Concomitant]
     Active Substance: TEPRENONE
     Indication: Prophylaxis against gastrointestinal ulcer
  5. ITOPRIDE [Concomitant]
     Active Substance: ITOPRIDE
     Indication: Prophylaxis
     Dosage: 50 MG, TID
     Route: 048
     Dates: start: 20110826
  6. REBAMIPIDE [Concomitant]
     Active Substance: REBAMIPIDE
     Indication: Gastritis prophylaxis
     Dosage: 100 MG, TID
     Route: 048
     Dates: start: 20051021
  7. SULFAMETHOXAZOLE\TRIMETHOPRIM [Concomitant]
     Active Substance: SULFAMETHOXAZOLE\TRIMETHOPRIM
     Indication: Pneumocystis jirovecii pneumonia
     Dosage: 100 MG, TID
     Route: 048
     Dates: start: 20150312
  8. ERYTHROCIN [ERYTHROMYCIN STEARATE] [Concomitant]
     Indication: Pneumonia
     Dosage: 200 MG, BID
     Route: 048
     Dates: start: 20190910
  9. ALFACALCIDOL [Concomitant]
     Active Substance: ALFACALCIDOL
     Indication: Osteoporosis prophylaxis
     Dosage: 0.25 UG, QD
     Route: 048
     Dates: start: 20170711
  10. CALONAL [Concomitant]
     Active Substance: ACETAMINOPHEN
     Indication: Arthralgia
     Dosage: 600 MG, BID
     Route: 048
     Dates: start: 20200512
  11. FAMOTIDINE [Concomitant]
     Active Substance: FAMOTIDINE
     Indication: Prophylaxis against gastrointestinal ulcer
     Dosage: 20 MG, BID
     Route: 048
     Dates: start: 20140718
  12. SULFASALAZINE [Concomitant]
     Active Substance: SULFASALAZINE
     Indication: Rheumatoid arthritis
     Dosage: 500 MG, BID
     Route: 048
     Dates: start: 20210406
  13. DENOSUMAB [Concomitant]
     Active Substance: DENOSUMAB
     Indication: Osteoporosis prophylaxis
     Dosage: 60 MG, Q6M
     Route: 058
     Dates: start: 20151117

REACTIONS (4)
  - Cardiac tamponade [Recovered/Resolved]
  - Cough [Recovered/Resolved]
  - Dyspnoea [Recovered/Resolved]
  - Pleural effusion [Recovered/Resolved]

NARRATIVE: CASE EVENT DATE: 20210815
